FAERS Safety Report 6811905 (Version 9)
Quarter: 2013Q4

REPORT INFORMATION
  Report Type: Spontaneous
  Country: US (occurrence: US)
  Receive Date: 20081015
  Receipt Date: 20131217
  Transmission Date: 20140711
  Serious: Yes (Hospitalization, Other)
  Sender: FDA-Public Use
  Company Number: US-BIOGENIDEC-2008BI026805

PATIENT
  Age: 46 Year
  Sex: Female

DRUGS (2)
  1. AVONEX [Suspect]
     Indication: MULTIPLE SCLEROSIS
     Route: 030
     Dates: start: 20050424, end: 20081201
  2. AVONEX [Suspect]
     Indication: MULTIPLE SCLEROSIS
     Route: 030
     Dates: start: 20100525

REACTIONS (16)
  - Diverticulitis [Recovered/Resolved]
  - Intestinal perforation [Recovered/Resolved]
  - Postoperative renal failure [Recovered/Resolved]
  - Visual impairment [Not Recovered/Not Resolved]
  - Injury associated with device [Recovered/Resolved]
  - Rectal haemorrhage [Not Recovered/Not Resolved]
  - Local swelling [Recovered/Resolved]
  - Swelling face [Recovered/Resolved]
  - Infusion site bruising [Not Recovered/Not Resolved]
  - Weight increased [Recovered/Resolved]
  - Weight decreased [Not Recovered/Not Resolved]
  - Loss of control of legs [Not Recovered/Not Resolved]
  - White blood cell count increased [Recovered/Resolved]
  - Influenza like illness [Recovered/Resolved]
  - Anxiety [Recovered/Resolved]
  - Asthenia [Not Recovered/Not Resolved]
